FAERS Safety Report 4690702-4 (Version None)
Quarter: 2005Q2

REPORT INFORMATION
  Report Type: 
  Country: None (occurrence: None)
  Receive Date: 20050613
  Receipt Date: 20050531
  Transmission Date: 20051028
  Serious: Yes (Hospitalization)
  Sender: FDA-Public Use
  Company Number: 207060

PATIENT
  Age: 71 Year

DRUGS (3)
  1. MABTHERA              (RITUXIMAB) [Suspect]
     Indication: MANTLE CELL LYMPHOMA
     Route: 042
  2. FLUDARABINE PHOSPHATE [Suspect]
     Indication: MANTLE CELL LYMPHOMA
  3. CYCLOPHOSPHAMIDE [Suspect]

REACTIONS (1)
  - DEEP VEIN THROMBOSIS [None]
